FAERS Safety Report 14343208 (Version 1)
Quarter: 2017Q4

REPORT INFORMATION
  Report Type: Spontaneous
  Country: US (occurrence: US)
  Receive Date: 20171229
  Receipt Date: 20171229
  Transmission Date: 20180321
  Serious: No
  Sender: FDA-Public Use
  Company Number: None

PATIENT
  Age: 65 Year
  Sex: Female
  Weight: 42.75 kg

DRUGS (10)
  1. SIMVASTATIN. [Concomitant]
     Active Substance: SIMVASTATIN
  2. SYNTHROID [Concomitant]
     Active Substance: LEVOTHYROXINE SODIUM
  3. NABUMETONE. [Suspect]
     Active Substance: NABUMETONE
     Indication: INFLAMMATION
     Dosage: ?          QUANTITY:30 TABLET(S);?
     Route: 048
  4. EVISTA [Concomitant]
     Active Substance: RALOXIFENE HYDROCHLORIDE
  5. MULTIVITAMIN [Concomitant]
     Active Substance: VITAMINS
  6. VITAMIN C [Concomitant]
     Active Substance: ASCORBIC ACID
  7. VITAMIN D [Concomitant]
     Active Substance: CHOLECALCIFEROL
  8. VITAMIN E [Concomitant]
     Active Substance: .ALPHA.-TOCOPHEROL
  9. VITAMIN A [Concomitant]
     Active Substance: VITAMIN A
  10. NABUMETONE. [Suspect]
     Active Substance: NABUMETONE
     Indication: BURSITIS
     Dosage: ?          QUANTITY:30 TABLET(S);?
     Route: 048

REACTIONS (5)
  - Dizziness [None]
  - Burning sensation [None]
  - Rash [None]
  - Dyspnoea [None]
  - Pruritus generalised [None]

NARRATIVE: CASE EVENT DATE: 20171213
